FAERS Safety Report 7325369-X (Version None)
Quarter: 2011Q1

REPORT INFORMATION
  Report Type: 
  Country: None (occurrence: None)
  Receive Date: 20110302
  Receipt Date: 20110224
  Transmission Date: 20110831
  Serious: Yes (Other)
  Sender: FDA-Public Use
  Company Number: BE-AMGEN-BELSP2011004746

PATIENT

DRUGS (5)
  1. COMBIVIR [Concomitant]
     Dosage: UNK
     Dates: start: 20091020
  2. ORGAMETRIL [Concomitant]
     Dosage: 5 MG, UNK
     Dates: start: 20060101
  3. SEROXAT                            /00830801/ [Concomitant]
     Dosage: 20 MG, UNK
  4. NPLATE [Suspect]
     Indication: IDIOPATHIC THROMBOCYTOPENIC PURPURA
     Dosage: 10 A?G/KG, QWK
     Route: 058
     Dates: start: 20091012, end: 20110110
  5. ELTHYRONE [Concomitant]
     Dosage: 75 A?G, UNK

REACTIONS (1)
  - THERAPEUTIC RESPONSE DECREASED [None]
